FAERS Safety Report 7942313-2 (Version None)
Quarter: 2011Q4

REPORT INFORMATION
  Report Type: 
  Country: None (occurrence: None)
  Receive Date: 20111122
  Receipt Date: 20110818
  Transmission Date: 20120403
  Serious: Yes (Other)
  Sender: FDA-Public Use
  Company Number: PHHY2011US58683

PATIENT
  Age: 57 Year
  Sex: Male

DRUGS (2)
  1. GILENYA [Suspect]
     Indication: RELAPSING-REMITTING MULTIPLE SCLEROSIS
     Dosage: 0.5 MG, QD,ORAL
     Route: 048
     Dates: start: 20110602, end: 20110629
  2. FAMPRIDINE (FAMPRIDINE) [Concomitant]

REACTIONS (5)
  - VISION BLURRED [None]
  - EYE DISORDER [None]
  - PHOTOPSIA [None]
  - MULTIPLE SCLEROSIS RELAPSE [None]
  - MACULAR OEDEMA [None]
